FAERS Safety Report 8858431 (Version 1)
Quarter: 2012Q4

REPORT INFORMATION
  Report Type: Report from Study
  Country: BR (occurrence: BR)
  Receive Date: 20121024
  Receipt Date: 20121024
  Transmission Date: 20130627
  Serious: Yes (Death, Life-Threatening, Hospitalization, Other)
  Sender: FDA-Public Use
  Company Number: BR-MERCK-1105USA02419

PATIENT
  Age: 71 Year
  Sex: Male
  Weight: 100 kg

DRUGS (4)
  1. SIMVASTATIN [Suspect]
     Dosage: 40 mg, qd
     Route: 048
     Dates: start: 20091120
  2. ASPIRIN [Concomitant]
     Dosage: 200 mg, qd
     Route: 048
     Dates: start: 20091120
  3. METOPROLOL [Concomitant]
     Dosage: 100 mg, qd
     Route: 048
     Dates: start: 20091120
  4. HYDROCHLOROTHIAZIDE [Concomitant]
     Dosage: 25 mg, qd
     Route: 048
     Dates: start: 20100621

REACTIONS (1)
  - Leukaemia [Fatal]
